FAERS Safety Report 4853706-4 (Version None)
Quarter: 2005Q4

REPORT INFORMATION
  Report Type: 
  Country: None (occurrence: None)
  Receive Date: 20051214
  Receipt Date: 20051205
  Transmission Date: 20060501
  Serious: Yes (Other)
  Sender: FDA-Public Use
  Company Number: PHBS2005IT18000

PATIENT
  Age: 29 Year
  Sex: Male

DRUGS (7)
  1. CYCLOSPORINE [Suspect]
     Indication: PEMPHIGUS
     Dosage: 350 MG/DAY
     Route: 048
  2. CYCLOSPORINE [Suspect]
     Dosage: 175 MG/DAY
     Route: 048
  3. LAMIVUDINE [Suspect]
     Indication: HIV INFECTION
     Dosage: 300 MG/DAY
     Route: 065
  4. TENOFOVIR [Suspect]
     Indication: HIV INFECTION
     Dosage: 300 MG/DAY
     Route: 065
  5. LOPINAVIR W/RITONAVIR [Suspect]
     Indication: HIV INFECTION
     Dosage: 133.3 MG LOPINAVIR/33.3 MG RITONAVIR
     Route: 048
  6. DEFLAZACORT [Concomitant]
     Indication: PEMPHIGUS
  7. AZATHIOPRINE [Concomitant]
     Indication: PEMPHIGUS

REACTIONS (9)
  - ABDOMINAL DISCOMFORT [None]
  - BLOOD CREATININE INCREASED [None]
  - BLOOD UREA INCREASED [None]
  - DRUG INTERACTION [None]
  - DRUG LEVEL INCREASED [None]
  - FATIGUE [None]
  - HEADACHE [None]
  - NEPHROPATHY TOXIC [None]
  - RENAL IMPAIRMENT [None]
